FAERS Safety Report 9771090 (Version 1)
Quarter: 2013Q4

REPORT INFORMATION
  Report Type: Spontaneous
  Country: US (occurrence: US)
  Receive Date: 20131218
  Receipt Date: 20131218
  Transmission Date: 20140711
  Serious: Yes (Other)
  Sender: FDA-Public Use
  Company Number: US-PFIZER INC-2013358517

PATIENT
  Age: 64 Year
  Sex: Male

DRUGS (3)
  1. BENZYLPENICILLIN POTASSIUM [Suspect]
     Indication: ENDOCARDITIS BACTERIAL
     Dosage: 2000000 IU, EVERY 2 HOURS
     Route: 042
  2. BENZYLPENICILLIN POTASSIUM [Suspect]
     Dosage: 2000000 IU, EVERY 4 HRS
     Route: 042
  3. STREPTOMYCIN [Concomitant]
     Indication: ANTIBIOTIC THERAPY
     Dosage: 500 MG, EVERY 12 HOURS
     Route: 030

REACTIONS (4)
  - Cystitis haemorrhagic [Recovered/Resolved]
  - Urethritis [Recovered/Resolved]
  - Tubulointerstitial nephritis [Recovered/Resolved]
  - Phlebitis [Unknown]
